FAERS Safety Report 10731771 (Version 1)
Quarter: 2015Q1

REPORT INFORMATION
  Report Type: Report from Study
  Country: CL (occurrence: CL)
  Receive Date: 20150123
  Receipt Date: 20150123
  Transmission Date: 20150721
  Serious: Yes (Other)
  Sender: FDA-Public Use
  Company Number: CL-ROCHE-1508360

PATIENT
  Age: 49 Year
  Sex: Female
  Weight: 57.3 kg

DRUGS (1)
  1. XELODA [Suspect]
     Active Substance: CAPECITABINE
     Indication: BREAST CANCER
     Dosage: 14 DAYS PER CYCLE
     Route: 048
     Dates: start: 20141021, end: 20150116

REACTIONS (4)
  - Ill-defined disorder [Unknown]
  - Erythema [Recovered/Resolved]
  - Wound [Unknown]
  - Skin exfoliation [Not Recovered/Not Resolved]
